FAERS Safety Report 13154205 (Version 1)
Quarter: 2017Q1

REPORT INFORMATION
  Report Type: Spontaneous
  Country: US (occurrence: US)
  Receive Date: 20170126
  Receipt Date: 20170126
  Transmission Date: 20170428
  Serious: Yes (Death, Other)
  Sender: FDA-Public Use
  Company Number: US-PFIZER INC-2017028844

PATIENT
  Age: 58 Year
  Sex: Female

DRUGS (4)
  1. DIPHENHYDRAMINE/IBUPROFEN [Suspect]
     Active Substance: DIPHENHYDRAMINE HYDROCHLORIDE\IBUPROFEN
     Dosage: UNK
     Route: 048
  2. OLANZAPINE. [Suspect]
     Active Substance: OLANZAPINE
     Dosage: UNK
     Route: 048
  3. VENLAFAXINE HCL [Suspect]
     Active Substance: VENLAFAXINE HYDROCHLORIDE
     Dosage: UNK
     Route: 048
  4. CLONAZEPAM. [Suspect]
     Active Substance: CLONAZEPAM
     Dosage: UNK
     Route: 048

REACTIONS (3)
  - Exposure via ingestion [None]
  - Completed suicide [Fatal]
  - Toxicity to various agents [None]

NARRATIVE: CASE EVENT DATE: 2015
